FAERS Safety Report 15704093 (Version 2)
Quarter: 2018Q4

REPORT INFORMATION
  Report Type: Spontaneous
  Country: CY (occurrence: CY)
  Receive Date: 20181210
  Receipt Date: 20181214
  Transmission Date: 20190205
  Serious: Yes (Other)
  Sender: FDA-Public Use
  Company Number: CY-BEH-2018097358

PATIENT
  Age: 18 Month
  Sex: Male
  Weight: 12 kg

DRUGS (1)
  1. IDELVION [Suspect]
     Active Substance: COAGULATION FACTOR IX RECOMBINANT HUMAN
     Indication: FACTOR IX DEFICIENCY
     Dosage: 500 IU, QMT
     Route: 065

REACTIONS (2)
  - Vein disorder [Unknown]
  - Contusion [Unknown]
